FAERS Safety Report 15569441 (Version 1)
Quarter: 2018Q4

REPORT INFORMATION
  Report Type: Spontaneous
  Country: US (occurrence: US)
  Receive Date: 20181030
  Receipt Date: 20181030
  Transmission Date: 20190205
  Serious: No
  Sender: FDA-Public Use
  Company Number: None

PATIENT
  Age: 46 Year
  Sex: Female
  Weight: 46.35 kg

DRUGS (1)
  1. CIPROFLOXACIN HCL 500MG TAB PACK [Suspect]
     Active Substance: CIPROFLOXACIN HYDROCHLORIDE
     Indication: URINARY TRACT INFECTION
     Dosage: ?          QUANTITY:60 TABLET(S);?
     Route: 048
     Dates: start: 20181022

REACTIONS (2)
  - Hypoaesthesia [None]
  - Arthralgia [None]

NARRATIVE: CASE EVENT DATE: 20181024
